FAERS Safety Report 7948795-4 (Version None)
Quarter: 2011Q4

REPORT INFORMATION
  Report Type: 
  Country: None (occurrence: None)
  Receive Date: 20111130
  Receipt Date: 20111123
  Transmission Date: 20120403
  Serious: Yes (Other)
  Sender: FDA-Public Use
  Company Number: US-TEVA-310811USA

PATIENT
  Sex: Female
  Weight: 97.61 kg

DRUGS (5)
  1. PRAMIPEXOLE DIHYDROCHLORIDE [Concomitant]
  2. NAPROXEN [Concomitant]
  3. COPAXONE [Suspect]
     Indication: MULTIPLE SCLEROSIS
     Route: 058
     Dates: start: 20111114, end: 20111123
  4. PARACETAMOL [Concomitant]
  5. PREGABALIN [Concomitant]

REACTIONS (8)
  - DYSPNOEA [None]
  - CHEST DISCOMFORT [None]
  - PRURITUS [None]
  - SWELLING FACE [None]
  - LIP SWELLING [None]
  - INJECTION SITE URTICARIA [None]
  - EYE SWELLING [None]
  - URTICARIA [None]
